FAERS Safety Report 9500130 (Version 2)
Quarter: 2013Q4

REPORT INFORMATION
  Report Type: Spontaneous
  Country: IT (occurrence: IT)
  Receive Date: 20130905
  Receipt Date: 20131022
  Transmission Date: 20140711
  Serious: Yes (Life-Threatening)
  Sender: FDA-Public Use
  Company Number: IT-ACCORD-019167

PATIENT
  Age: 65 Year
  Sex: Female

DRUGS (1)
  1. PACLITAXEL [Suspect]
     Indication: BREAST CANCER
     Dosage: ACCORD^S PACLITAXEL, 6 MG/ML CONCENTRATE FOR SOLUTION FOR INFUSION ^300MG/50ML 1 GLASS VIAL,
     Route: 042
     Dates: start: 20130822, end: 20130822

REACTIONS (4)
  - Rash [Recovered/Resolved]
  - Cough [Recovered/Resolved]
  - Erythema [Recovered/Resolved]
  - Dyspnoea [Recovered/Resolved]
